FAERS Safety Report 14578069 (Version 1)
Quarter: 2018Q1

REPORT INFORMATION
  Report Type: Spontaneous
  Country: FI (occurrence: FI)
  Receive Date: 20180227
  Receipt Date: 20180227
  Transmission Date: 20180509
  Serious: Yes (Life-Threatening)
  Sender: FDA-Public Use
  Company Number: FI-009507513-1802FIN011193

PATIENT
  Age: 71 Year
  Sex: Female

DRUGS (2)
  1. COTRIM [Suspect]
     Active Substance: SULFAMETHOXAZOLE\TRIMETHOPRIM
     Indication: PNEUMOCYSTIS JIROVECII PNEUMONIA
     Dosage: UNK
     Route: 042
     Dates: start: 20180119, end: 20180131
  2. KEYTRUDA [Suspect]
     Active Substance: PEMBROLIZUMAB
     Indication: MALIGNANT MELANOMA
     Dosage: UNK
     Route: 042

REACTIONS (6)
  - Myositis [Recovering/Resolving]
  - Pneumocystis test positive [Recovering/Resolving]
  - Thrombocytopenia [Recovering/Resolving]
  - Pulmonary embolism [Recovering/Resolving]
  - Pneumonia [Recovering/Resolving]
  - Rash [Recovering/Resolving]

NARRATIVE: CASE EVENT DATE: 20171119
